FAERS Safety Report 8883400 (Version 1)
Quarter: 2012Q4

REPORT INFORMATION
  Report Type: 
  Country: GB (occurrence: GB)
  Receive Date: 20121102
  Receipt Date: 20121102
  Transmission Date: 20130627
  Serious: Yes (Life-Threatening, Hospitalization)
  Sender: FDA-Public Use
  Company Number: GB-ASTRAZENECA-2012SE82615

PATIENT
  Age: 21184 Day
  Sex: Female

DRUGS (3)
  1. BRILIQUE [Suspect]
     Indication: ACUTE MYOCARDIAL INFARCTION
     Route: 048
     Dates: start: 20121009
  2. ASPIRIN [Concomitant]
  3. BIVALIRUDIN [Concomitant]
     Indication: ANTICOAGULANT THERAPY

REACTIONS (3)
  - Chest pain [Unknown]
  - Thrombosis in device [Recovered/Resolved]
  - Infarction [Unknown]
